FAERS Safety Report 7426484-2 (Version None)
Quarter: 2011Q1

REPORT INFORMATION
  Report Type: 
  Country: None (occurrence: None)
  Receive Date: 20110302
  Receipt Date: 20110104
  Transmission Date: 20110831
  Serious: No
  Sender: FDA-Public Use
  Company Number: 022932

PATIENT
  Sex: Female
  Weight: 97.5 kg

DRUGS (6)
  1. PROMETHAZINE [Concomitant]
  2. TRAMADOL HCL [Concomitant]
  3. NORVASC [Concomitant]
  4. CIMZIA [Suspect]
     Indication: CROHN'S DISEASE
     Dosage: (2 SHOTS LOADING DOSE PFS SUBCUTANEOUS)
     Route: 058
     Dates: start: 20101120, end: 20101204
  5. AMLODIPINE BESYLATE AND VALSARTAN [Concomitant]
  6. NEBIVOLOL [Concomitant]

REACTIONS (10)
  - ABDOMINAL PAIN UPPER [None]
  - CHEST PAIN [None]
  - INFLUENZA LIKE ILLNESS [None]
  - FURUNCLE [None]
  - NAUSEA [None]
  - DIARRHOEA [None]
  - HEADACHE [None]
  - NASAL CONGESTION [None]
  - HAEMORRHAGE [None]
  - HAEMORRHOIDS [None]
